FAERS Safety Report 4787057-3 (Version None)
Quarter: 2005Q3

REPORT INFORMATION
  Report Type: 
  Country: None (occurrence: None)
  Receive Date: 20050930
  Receipt Date: 20050916
  Transmission Date: 20060218
  Serious: Yes (Hospitalization)
  Sender: FDA-Public Use
  Company Number: 217877

PATIENT
  Age: 61 Year
  Sex: Female
  Weight: 70.5 kg

DRUGS (3)
  1. AVASTIN [Suspect]
     Indication: OVARIAN CANCER
     Dosage: 10 MG/KG, DAYS1, 8, 15, INTRAVENOUS
     Route: 042
     Dates: start: 20040419
  2. CYCLOPHOSPHAMIDE [Suspect]
     Indication: OVARIAN CANCER
     Dosage: 5 MG, QD, ORAL
     Route: 048
     Dates: start: 20040419
  3. DECADRON [Concomitant]

REACTIONS (4)
  - DEFAECATION URGENCY [None]
  - GASTROINTESTINAL PERFORATION [None]
  - POLLAKIURIA [None]
  - URINARY RETENTION [None]
